FAERS Safety Report 14192149 (Version 3)
Quarter: 2017Q4

REPORT INFORMATION
  Report Type: Report from Study
  Country: None (occurrence: TR)
  Receive Date: 20171115
  Receipt Date: 20171206
  Transmission Date: 20180321
  Serious: Yes (Death, Hospitalization)
  Sender: FDA-Public Use
  Company Number: TR-ABBVIE-17K-161-2161699-00

PATIENT
  Age: 54 Year
  Sex: Female
  Weight: 55 kg

DRUGS (1)
  1. DUODOPA [Suspect]
     Active Substance: CARBIDOPA\LEVODOPA
     Indication: PARKINSON^S DISEASE
     Dosage: MORNING DOSE(ML):14.00??CONTINOUS DOSE(ML):4.60??EXTRA DOSE(ML):2.00
     Route: 050
     Dates: start: 20170529, end: 20171114

REACTIONS (3)
  - Aspiration [Unknown]
  - Device dislocation [Unknown]
  - Death [Fatal]

NARRATIVE: CASE EVENT DATE: 2017
